FAERS Safety Report 5995083-1 (Version None)
Quarter: 2008Q4

REPORT INFORMATION
  Report Type: 
  Country: None (occurrence: None)
  Receive Date: 20081210
  Receipt Date: 20081126
  Transmission Date: 20090506
  Serious: Yes (Other)
  Sender: FDA-Public Use
  Company Number: FRP08001079

PATIENT
  Age: 63 Year
  Sex: Female

DRUGS (7)
  1. ACTONEL [Suspect]
     Indication: OSTEOPENIA
     Dosage: 35 MG, 1 /WEEK, ORAL
     Route: 048
     Dates: start: 20040101, end: 20080401
  2. LOPRESSOR [Concomitant]
  3. VASTEN /00880402/ (PRAVASTATIN SODIUM) [Concomitant]
  4. ART (DIACEREIN) [Concomitant]
  5. ATACAND [Concomitant]
  6. PIASCLEDINE /00809501/ (PIAS) [Concomitant]
  7. OROCAL /00108001/ (CALCIUM CARBONATE) [Concomitant]

REACTIONS (2)
  - GRAFT LOSS [None]
  - IMPAIRED HEALING [None]
